FAERS Safety Report 9685539 (Version 1)
Quarter: 2013Q4

REPORT INFORMATION
  Report Type: Spontaneous
  Country: US (occurrence: None)
  Receive Date: 20131112
  Receipt Date: 20131112
  Transmission Date: 20140711
  Serious: Yes (Life-Threatening, Hospitalization)
  Sender: FDA-Public Use
  Company Number: None

PATIENT
  Age: 39 Year
  Sex: Male

DRUGS (4)
  1. PANTOPRAZOLE [Suspect]
     Indication: UPPER GASTROINTESTINAL HAEMORRHAGE
     Dates: start: 20130429, end: 20130515
  2. PAROXETINE [Concomitant]
  3. LACTULOSE [Concomitant]
  4. MULTIVITAMINS [Concomitant]

REACTIONS (3)
  - Tubulointerstitial nephritis [None]
  - Renal failure acute [None]
  - Kidney enlargement [None]
